FAERS Safety Report 15672753 (Version 3)
Quarter: 2019Q4

REPORT INFORMATION
  Report Type: Report from Study
  Country: US (occurrence: US)
  Receive Date: 20181129
  Receipt Date: 20191001
  Transmission Date: 20200122
  Serious: Yes (Other)
  Sender: FDA-Public Use
  Company Number: US-TESARO-US-2018TSO03311

PATIENT
  Sex: Female

DRUGS (7)
  1. NIRAPARIB CAPSULE [Suspect]
     Active Substance: NIRAPARIB
     Dosage: 300 MG, QD (PM WITHOUT FOOD)
     Route: 048
  2. NIRAPARIB CAPSULE [Suspect]
     Active Substance: NIRAPARIB
     Indication: OVARIAN CANCER
     Dosage: 300 MG, QD (PM WITHOUT FOOD)
     Route: 048
     Dates: start: 20180609
  3. NIRAPARIB CAPSULE [Suspect]
     Active Substance: NIRAPARIB
     Dosage: 300 MG, QD (AM W/ FOOD)
     Route: 048
     Dates: start: 20180609
  4. NIRAPARIB CAPSULE [Suspect]
     Active Substance: NIRAPARIB
     Dosage: 300 MG, QD
     Route: 048
  5. NIRAPARIB CAPSULE [Suspect]
     Active Substance: NIRAPARIB
     Dosage: 300 MG PM WITHOUT FOOD
     Route: 048
     Dates: start: 20180609, end: 20190913
  6. ZOFRAN [Concomitant]
     Active Substance: ONDANSETRON HYDROCHLORIDE
     Indication: PRODUCT USED FOR UNKNOWN INDICATION
     Dosage: UNK
  7. LEXAPRO [Concomitant]
     Active Substance: ESCITALOPRAM OXALATE
     Indication: PRODUCT USED FOR UNKNOWN INDICATION
     Dosage: UNK

REACTIONS (13)
  - Pericardial calcification [Unknown]
  - Nausea [Recovering/Resolving]
  - Headache [Recovered/Resolved]
  - Metastatic neoplasm [Not Recovered/Not Resolved]
  - Taste disorder [Not Recovered/Not Resolved]
  - Myalgia [Not Recovered/Not Resolved]
  - Arthralgia [Not Recovered/Not Resolved]
  - Weight decreased [Unknown]
  - Tachycardia [Recovered/Resolved]
  - Carbohydrate antigen 125 increased [Recovering/Resolving]
  - Blood pressure increased [Recovered/Resolved]
  - Depression [Not Recovered/Not Resolved]
  - Drug ineffective [Unknown]
